FAERS Safety Report 21838720 (Version 4)
Quarter: 2024Q2

REPORT INFORMATION
  Report Type: Spontaneous
  Country: AT (occurrence: AT)
  Receive Date: 20230109
  Receipt Date: 20240617
  Transmission Date: 20240716
  Serious: Yes (Hospitalization)
  Sender: FDA-Public Use
  Company Number: AT-002147023-NVSC2022AT256505

PATIENT
  Sex: Female
  Weight: 59 kg

DRUGS (17)
  1. LETROZOLE [Suspect]
     Active Substance: LETROZOLE
     Indication: Breast cancer
     Dosage: 2.5 MG, QD
     Route: 048
     Dates: start: 20220302, end: 20220814
  2. LETROZOLE [Suspect]
     Active Substance: LETROZOLE
     Dosage: UNK
     Route: 065
     Dates: start: 20220825, end: 20220825
  3. EXEMESTANE [Suspect]
     Active Substance: EXEMESTANE
     Indication: Breast cancer
     Dosage: 25 MILLIGRAM, QD
     Route: 048
     Dates: start: 20220826
  4. PALBOCICLIB [Suspect]
     Active Substance: PALBOCICLIB
     Indication: Breast cancer
     Dosage: 125 MILLIGRAM, CYCLE
     Route: 048
     Dates: start: 20220302, end: 20220523
  5. PALBOCICLIB [Suspect]
     Active Substance: PALBOCICLIB
     Dosage: 100 MILLIGRAM, QD
     Route: 048
     Dates: start: 20220608, end: 20220628
  6. PALBOCICLIB [Suspect]
     Active Substance: PALBOCICLIB
     Dosage: 77 MILLIGRAM, QD
     Route: 048
     Dates: start: 20220728
  7. PALBOCICLIB [Suspect]
     Active Substance: PALBOCICLIB
     Dosage: UNK
     Route: 065
  8. ASPIRIN [Concomitant]
     Active Substance: ASPIRIN
     Indication: Prophylaxis
     Dosage: UNK
     Route: 048
     Dates: start: 20160128
  9. EUTHYROX [Concomitant]
     Active Substance: LEVOTHYROXINE SODIUM
     Indication: Hypothyroidism
     Dosage: UNK
     Route: 048
     Dates: start: 20100101
  10. MAXI KALZ [Concomitant]
     Indication: Prophylaxis
     Dosage: UNK
     Route: 065
     Dates: start: 20180328
  11. BISOPROLOL [Concomitant]
     Active Substance: BISOPROLOL\BISOPROLOL FUMARATE
     Indication: Hypertension
     Dosage: UNK
     Route: 048
     Dates: start: 20160128
  12. BISOPROLOL [Concomitant]
     Active Substance: BISOPROLOL\BISOPROLOL FUMARATE
     Dosage: UNK
     Route: 065
     Dates: start: 20220531, end: 20220704
  13. PANTOPRAZOLE SODIUM [Concomitant]
     Active Substance: PANTOPRAZOLE SODIUM
     Indication: Prophylaxis
     Dosage: UNK
     Route: 048
     Dates: start: 20180328
  14. ROSUVASTATIN [Concomitant]
     Active Substance: ROSUVASTATIN
     Indication: Product used for unknown indication
     Dosage: UNK
     Route: 048
     Dates: start: 20220329, end: 20230315
  15. ATORVASTATIN [Concomitant]
     Active Substance: ATORVASTATIN
     Indication: Prophylaxis
     Dosage: UNK
     Route: 048
     Dates: start: 20230316
  16. FUROSEMIDE [Concomitant]
     Active Substance: FUROSEMIDE
     Indication: Hypertension
     Dosage: UNK
     Route: 048
     Dates: start: 20180328, end: 20220520
  17. SPIRONOLACTONE [Concomitant]
     Active Substance: SPIRONOLACTONE
     Indication: Hypertension
     Dosage: UNK
     Route: 048
     Dates: start: 20180328, end: 20220530

REACTIONS (4)
  - Atrial fibrillation [Not Recovered/Not Resolved]
  - Cardiac failure [Recovered/Resolved]
  - Oedema peripheral [Unknown]
  - Urinary tract infection [Unknown]

NARRATIVE: CASE EVENT DATE: 20220823
